FAERS Safety Report 18455553 (Version 2)
Quarter: 2021Q1

REPORT INFORMATION
  Report Type: Other
  Country: CA (occurrence: CA)
  Receive Date: 20201102
  Receipt Date: 20210120
  Transmission Date: 20210419
  Serious: Yes (Death, Other)
  Sender: FDA-Public Use
  Company Number: CA-CELLTRION INC.-2020CA030264

PATIENT

DRUGS (15)
  1. ATIVAN [Concomitant]
     Active Substance: LORAZEPAM
  2. BENADRYL [Concomitant]
     Active Substance: DIPHENHYDRAMINE HYDROCHLORIDE
     Indication: PREMEDICATION
     Dosage: 50.0 MG
     Route: 048
  3. METHYLPREDNISOLONE. [Concomitant]
     Active Substance: METHYLPREDNISOLONE
     Indication: PREMEDICATION
     Dosage: 100.0 MG
     Route: 042
  4. CICLOSPORIN [Suspect]
     Active Substance: CYCLOSPORINE
     Indication: PRODUCT USED FOR UNKNOWN INDICATION
     Route: 048
  5. METHYLPREDNISOLONE SODIUM SUCCINATE. [Concomitant]
     Active Substance: METHYLPREDNISOLONE SODIUM SUCCINATE
     Indication: PREMEDICATION
     Dosage: 100.0 MG
     Route: 042
  6. RITUXIMAB (UNKNOWN) [Suspect]
     Active Substance: RITUXIMAB
     Dosage: UNK
     Route: 042
  7. RITUXIMAB (UNKNOWN) [Suspect]
     Active Substance: RITUXIMAB
     Indication: MYASTHENIA GRAVIS
     Dosage: 1000.0 MG
     Route: 042
  8. HYDROCHLOROTHIAZIDE. [Suspect]
     Active Substance: HYDROCHLOROTHIAZIDE
     Indication: PRODUCT USED FOR UNKNOWN INDICATION
     Route: 048
  9. IMMUNOGLOBULIN (HUMAN) (IMMUNOGLOBULIN HUMAN NORMAL) [Suspect]
     Active Substance: HUMAN IMMUNOGLOBULIN G
     Indication: PRODUCT USED FOR UNKNOWN INDICATION
     Dosage: UNK, MONTHLY (1 EVERY 1 MONTHS)
     Route: 042
  10. TYLENOL [Concomitant]
     Active Substance: ACETAMINOPHEN
     Indication: PREMEDICATION
     Dosage: 650.0 MG
     Route: 048
  11. LOSARTAN. [Suspect]
     Active Substance: LOSARTAN
     Indication: PRODUCT USED FOR UNKNOWN INDICATION
     Route: 065
  12. CANNABIS SATIVA [Concomitant]
     Active Substance: CANNABIS SATIVA FLOWERING TOP
     Indication: PAIN MANAGEMENT
  13. TRAMADOL. [Concomitant]
     Active Substance: TRAMADOL
  14. DIPHENHYDRAMINE HCL [Concomitant]
     Active Substance: DIPHENHYDRAMINE HYDROCHLORIDE
     Indication: PREMEDICATION
     Dosage: 50.0 MG
     Route: 048
  15. ACETAMINOPHEN. [Concomitant]
     Active Substance: ACETAMINOPHEN
     Indication: PREMEDICATION
     Dosage: 650.0 MG
     Route: 048

REACTIONS (37)
  - Dyspnoea [Fatal]
  - Drug ineffective [Fatal]
  - Off label use [Fatal]
  - Nausea [Fatal]
  - Extra dose administered [Fatal]
  - Muscular weakness [Fatal]
  - Coordination abnormal [Fatal]
  - Fatigue [Fatal]
  - Heart rate decreased [Fatal]
  - Heart rate increased [Fatal]
  - Hypersensitivity [Fatal]
  - Infection [Fatal]
  - Infusion site erythema [Fatal]
  - Blood cholesterol increased [Fatal]
  - Blood pressure increased [Fatal]
  - Nasal congestion [Fatal]
  - Sinusitis [Fatal]
  - Infusion related reaction [Fatal]
  - Extraocular muscle paresis [Fatal]
  - Diplopia [Fatal]
  - Dysarthria [Fatal]
  - Weight increased [Fatal]
  - Hypertension [Fatal]
  - Product use in unapproved indication [Fatal]
  - Musculoskeletal stiffness [Fatal]
  - Arthralgia [Fatal]
  - Blood pressure fluctuation [Fatal]
  - Blood pressure diastolic abnormal [Fatal]
  - Oxygen saturation decreased [Fatal]
  - Diarrhoea [Fatal]
  - Heart rate irregular [Fatal]
  - Therapy partial responder [Fatal]
  - Dry skin [Fatal]
  - White blood cell count increased [Fatal]
  - Asthenia [Fatal]
  - Nasopharyngitis [Fatal]
  - Lower respiratory tract infection [Fatal]
